APPROVED DRUG PRODUCT: CUPRIC SULFATE
Active Ingredient: CUPRIC SULFATE
Strength: EQ 0.4MG COPPER/ML
Dosage Form/Route: INJECTABLE;INJECTION
Application: A218745 | Product #001
Applicant: APOTEX CORP
Approved: Aug 19, 2024 | RLD: No | RS: No | Type: DISCN